FAERS Safety Report 7903721-9 (Version None)
Quarter: 2011Q4

REPORT INFORMATION
  Report Type: 
  Country: None (occurrence: None)
  Receive Date: 20111109
  Receipt Date: 20111107
  Transmission Date: 20120403
  Serious: Yes (Death, Hospitalization)
  Sender: FDA-Public Use
  Company Number: US-B.I. PHARMACEUTICALS,INC./RIDGEFIELD-2011-BP-20307BP

PATIENT
  Age: 84 Year
  Sex: Female

DRUGS (11)
  1. PRADAXA [Suspect]
     Indication: ATRIAL FIBRILLATION
     Dosage: 150 MG
     Route: 048
     Dates: start: 20110503, end: 20110816
  2. LIPITOR [Concomitant]
     Indication: BLOOD CHOLESTEROL INCREASED
     Dosage: 20 MG
     Route: 048
     Dates: start: 20000101
  3. LISINOPRIL [Concomitant]
     Indication: HYPERTENSION
     Route: 048
  4. LEXAPRO [Concomitant]
     Dosage: 20 MG
     Dates: start: 20010731
  5. LASIX [Concomitant]
     Dates: start: 20010731
  6. PREDNISONE [Concomitant]
     Dates: start: 20010731
  7. DIGOXIN [Concomitant]
  8. SINEQUAN [Concomitant]
     Dates: start: 20010731
  9. ASPIRIN [Suspect]
     Dosage: 81 MG
     Route: 048
     Dates: start: 20110712, end: 20110815
  10. ACCURETIC [Concomitant]
     Dates: start: 20010731
  11. ZYLOPRIM [Concomitant]
     Dates: start: 20010731

REACTIONS (6)
  - MELAENA [None]
  - VOMITING [None]
  - ABDOMINAL PAIN [None]
  - DECREASED APPETITE [None]
  - GASTROINTESTINAL HAEMORRHAGE [None]
  - NAUSEA [None]
